FAERS Safety Report 10971969 (Version 1)
Quarter: 2015Q1

REPORT INFORMATION
  Report Type: Spontaneous
  Country: US (occurrence: None)
  Receive Date: 20150330
  Receipt Date: 20150330
  Transmission Date: 20150721
  Serious: Yes (Other)
  Sender: FDA-Public Use
  Company Number: None

PATIENT
  Age: 46 Year
  Sex: Female
  Weight: 84.37 kg

DRUGS (2)
  1. LUPRON [Suspect]
     Active Substance: LEUPROLIDE ACETATE
     Indication: UTERINE LEIOMYOMA
     Dosage: 11: 25 MG INJECTED
     Dates: start: 20141116
  2. LUPROL [Concomitant]

REACTIONS (5)
  - Vaginal discharge [None]
  - Paraesthesia [None]
  - Hypoaesthesia [None]
  - Pain in jaw [None]
  - Dizziness [None]

NARRATIVE: CASE EVENT DATE: 20141120
